FAERS Safety Report 5306728-3 (Version None)
Quarter: 2007Q2

REPORT INFORMATION
  Report Type: 
  Country: None (occurrence: None)
  Receive Date: 20070424
  Receipt Date: 20070414
  Transmission Date: 20071010
  Serious: Yes (Disabling)
  Sender: FDA-Public Use
  Company Number: US-PFIZER INC-2007031598

PATIENT
  Sex: Male
  Weight: 68 kg

DRUGS (6)
  1. NORVASC [Suspect]
     Indication: HYPERTENSION
     Route: 048
  2. NORVASC [Suspect]
     Route: 048
  3. LIPITOR [Suspect]
     Indication: BLOOD CHOLESTEROL INCREASED
     Route: 048
     Dates: start: 20070410
  4. CAPTOPRIL [Suspect]
     Indication: HYPERTENSION
  5. LUMIGAN [Suspect]
     Indication: GLAUCOMA
  6. COQ-10 ST [Concomitant]

REACTIONS (2)
  - ASTHENIA [None]
  - GAIT DISTURBANCE [None]
